FAERS Safety Report 12203447 (Version 1)
Quarter: 2016Q1

REPORT INFORMATION
  Report Type: Spontaneous
  Country: US (occurrence: None)
  Receive Date: 20160321
  Receipt Date: 20160321
  Transmission Date: 20160526
  Serious: Yes (Other)
  Sender: FDA-Public Use
  Company Number: None

PATIENT
  Age: 52 Year
  Sex: Female

DRUGS (1)
  1. HUMIRA [Suspect]
     Active Substance: ADALIMUMAB
     Indication: RHEUMATOID ARTHRITIS
     Dosage: SUBCUTANEOUS 40MG/0.8ML INJECTABLE EVERY OTHER WEEK
     Route: 058
     Dates: start: 20160201

REACTIONS (7)
  - Contusion [None]
  - Headache [None]
  - Impaired healing [None]
  - Rhinorrhoea [None]
  - Rash [None]
  - Paraesthesia [None]
  - Drug ineffective [None]

NARRATIVE: CASE EVENT DATE: 20160201
